FAERS Safety Report 7888346-6 (Version None)
Quarter: 2011Q4

REPORT INFORMATION
  Report Type: 
  Country: None (occurrence: None)
  Receive Date: 20111103
  Receipt Date: 20111020
  Transmission Date: 20120403
  Serious: Yes (Other)
  Sender: FDA-Public Use
  Company Number: PHFR2011GB06048

PATIENT
  Age: 65 Year
  Sex: Male

DRUGS (1)
  1. NATEGLINIDE [Suspect]
     Dosage: 60 MG, TID
     Route: 048
     Dates: start: 20111001, end: 20111001

REACTIONS (1)
  - DYSPNOEA [None]
